FAERS Safety Report 24995132 (Version 6)
Quarter: 2025Q3

REPORT INFORMATION
  Report Type: Report from Study
  Country: KR (occurrence: KR)
  Receive Date: 20250221
  Receipt Date: 20250904
  Transmission Date: 20251021
  Serious: Yes (Death, Life-Threatening, Other)
  Sender: NOVARTIS
  Company Number: KR-002147023-NVSC2025KR029588

PATIENT
  Age: 51 Year
  Sex: Female
  Weight: 52 kg

DRUGS (11)
  1. KISQALI [Suspect]
     Active Substance: RIBOCICLIB SUCCINATE
     Indication: Hormone receptor positive HER2 negative breast cancer
     Dosage: 600 MG, QD
     Route: 048
     Dates: start: 20240130, end: 20240201
  2. KISQALI [Suspect]
     Active Substance: RIBOCICLIB SUCCINATE
     Dosage: 600 MG, QD
     Route: 048
     Dates: start: 20240227, end: 20240318
  3. KISQALI [Suspect]
     Active Substance: RIBOCICLIB SUCCINATE
     Dosage: 600 MG, QD
     Route: 048
     Dates: start: 20240326, end: 20240415
  4. KISQALI [Suspect]
     Active Substance: RIBOCICLIB SUCCINATE
     Dosage: 600 MG, QD
     Route: 048
     Dates: start: 20240423, end: 20240509
  5. A Dex [Concomitant]
     Indication: Hormone therapy
     Dosage: 1 MG, QD
     Route: 048
     Dates: start: 20240130, end: 20240509
  6. Cal D3 [Concomitant]
     Indication: Prophylaxis
     Dosage: 1 DOSAGE FORM, QD
     Route: 048
     Dates: start: 20240130, end: 20240521
  7. Pennel [Concomitant]
     Indication: Prophylaxis
     Dosage: 3 DOSAGE FORM, QD (3 DOSAGE FORM (3 CAP/DAY))
     Route: 048
     Dates: start: 20240130, end: 20240521
  8. URSODIOL [Concomitant]
     Active Substance: URSODIOL
     Indication: Prophylaxis
     Dosage: 300 MG, QD
     Route: 048
     Dates: start: 20240130, end: 20240507
  9. FERROUS SULFATE\PROTEASE [Concomitant]
     Active Substance: FERROUS SULFATE\PROTEASE
     Indication: Anaemia
     Dosage: 336 MG, QD (SR TAB)
     Route: 048
     Dates: start: 20240130, end: 20240521
  10. XGEVA [Concomitant]
     Active Substance: DENOSUMAB
     Indication: Prophylaxis
     Dosage: 120 MG, QD
     Route: 058
     Dates: start: 20240130, end: 20240423
  11. Nesbell [Concomitant]
     Indication: Anaemia
     Dosage: 120 UG, QD
     Route: 058
     Dates: start: 20240130, end: 20240509

REACTIONS (6)
  - Hepatic failure [Fatal]
  - Dyspnoea exertional [Not Recovered/Not Resolved]
  - Dyspnoea [Recovering/Resolving]
  - Liver function test increased [Not Recovered/Not Resolved]
  - Hormone receptor positive HER2 negative breast cancer [Unknown]
  - Malignant neoplasm progression [Unknown]

NARRATIVE: CASE EVENT DATE: 20240201
